FAERS Safety Report 4799686-1 (Version None)
Quarter: 2005Q4

REPORT INFORMATION
  Report Type: 
  Country: None (occurrence: None)
  Receive Date: 20051013
  Receipt Date: 20050928
  Transmission Date: 20060501
  Serious: Yes (Other)
  Sender: FDA-Public Use
  Company Number: 2005136232

PATIENT
  Age: 85 Year
  Sex: Female

DRUGS (4)
  1. ZOLOFT [Suspect]
     Indication: DEPRESSION
     Dosage: 100 MG (50 MG, 2 IN 1 D)
     Dates: start: 20030512, end: 20050513
  2. RAMIPRIL [Concomitant]
  3. KARDEGIC (ACETYLSALICYLATE LYSINE) [Concomitant]
  4. DIGOXIN [Concomitant]

REACTIONS (7)
  - ABNORMAL BEHAVIOUR [None]
  - AGGRESSION [None]
  - AGITATION [None]
  - DELIRIUM [None]
  - INCOHERENT [None]
  - INSOMNIA [None]
  - PARANOIA [None]
